FAERS Safety Report 11116851 (Version 6)
Quarter: 2016Q1

REPORT INFORMATION
  Report Type: Report from Study
  Country: US (occurrence: US)
  Receive Date: 20150515
  Receipt Date: 20160217
  Transmission Date: 20160525
  Serious: Yes (Hospitalization)
  Sender: FDA-Public Use
  Company Number: US-ACTELION-A-NJ2015-117842

PATIENT
  Age: 72 Year
  Sex: Female

DRUGS (1)
  1. TRACLEER [Suspect]
     Active Substance: BOSENTAN
     Indication: PULMONARY ARTERIAL HYPERTENSION
     Dosage: 62.5 MG, BID
     Route: 048

REACTIONS (7)
  - Renal failure [Unknown]
  - Cardiac pacemaker insertion [Unknown]
  - Dizziness [Unknown]
  - Fungal infection [Unknown]
  - Pulmonary oedema [Unknown]
  - Renal disorder [Unknown]
  - Pruritus generalised [Unknown]
